FAERS Safety Report 9361687 (Version 1)
Quarter: 2013Q2

REPORT INFORMATION
  Report Type: Spontaneous
  Country: FR (occurrence: FR)
  Receive Date: 20130621
  Receipt Date: 20130621
  Transmission Date: 20140414
  Serious: Yes (Hospitalization, Other)
  Sender: FDA-Public Use
  Company Number: FR-ABBOTT-13X-056-1104632-00

PATIENT
  Age: 80 Year
  Sex: Female

DRUGS (6)
  1. ZECLAR [Suspect]
     Indication: HELICOBACTER INFECTION
     Route: 048
     Dates: start: 20130303, end: 20130308
  2. COUMADINE [Interacting]
     Indication: PRODUCT USED FOR UNKNOWN INDICATION
     Dosage: 5 MILLIGRAM DAILY
     Route: 048
     Dates: start: 20130228
  3. COUMADINE [Interacting]
     Dosage: 3 MG DAILY
     Dates: start: 20130303
  4. COUMADINE [Interacting]
     Dosage: 2 MILLIGRAM DAILY
     Dates: start: 20130305, end: 20130306
  5. COUMADINE [Interacting]
     Dosage: 1 TO 2MG EVERY OTHER DAY
  6. METRONIDAZOLE [Interacting]
     Indication: HELICOBACTER INFECTION
     Route: 048
     Dates: start: 20130301, end: 20130307

REACTIONS (3)
  - Drug interaction [Unknown]
  - International normalised ratio increased [Recovered/Resolved]
  - Overdose [Recovered/Resolved]
